FAERS Safety Report 8582463-3 (Version None)
Quarter: 2012Q3

REPORT INFORMATION
  Report Type: 
  Country: None (occurrence: None)
  Receive Date: 20120809
  Receipt Date: 20120802
  Transmission Date: 20120928
  Serious: Yes (Hospitalization)
  Sender: FDA-Public Use
  Company Number: US-JNJFOC-20111006851

PATIENT
  Sex: Male
  Weight: 97 kg

DRUGS (12)
  1. INFLIXIMAB, RECOMBINANT [Suspect]
     Indication: INFLAMMATORY BOWEL DISEASE
     Route: 042
     Dates: start: 20110902
  2. PAMIDRONATE DISODIUM [Concomitant]
  3. GABAPENTIN [Concomitant]
  4. MELATONIN [Concomitant]
  5. AMITRIPTYLINE HCL [Concomitant]
  6. CLINDAMYCIN [Suspect]
     Indication: PRODUCT USED FOR UNKNOWN INDICATION
     Route: 048
  7. DIAZEPAM [Concomitant]
  8. VITAMIN [Concomitant]
  9. ANTIBIOTICS [Concomitant]
     Indication: INFLAMMATORY BOWEL DISEASE
  10. MESALAMINE [Concomitant]
  11. FLONASE [Concomitant]
  12. ZOFRAN [Concomitant]

REACTIONS (1)
  - INFLAMMATORY BOWEL DISEASE [None]
